FAERS Safety Report 17478171 (Version 1)
Quarter: 2020Q1

REPORT INFORMATION
  Report Type: Spontaneous
  Country: FR (occurrence: FR)
  Receive Date: 20200228
  Receipt Date: 20200228
  Transmission Date: 20200409
  Serious: Yes (Death)
  Sender: FDA-Public Use
  Company Number: FR-PERRIGO-20FR001964

PATIENT
  Age: 38 Year
  Sex: Female

DRUGS (1)
  1. BETAMETHASONE DIPROPIONATE. [Suspect]
     Active Substance: BETAMETHASONE DIPROPIONATE
     Indication: PRURITUS
     Dosage: 600 G PER MONTH
     Route: 061

REACTIONS (3)
  - Adrenal insufficiency [Fatal]
  - Intentional product misuse [Fatal]
  - Cushing^s syndrome [Fatal]
